FAERS Safety Report 7018597-4 (Version None)
Quarter: 2010Q3

REPORT INFORMATION
  Report Type: 
  Country: None (occurrence: None)
  Receive Date: 20100922
  Receipt Date: 20100913
  Transmission Date: 20110219
  Serious: Yes (Other)
  Sender: FDA-Public Use
  Company Number: 2010EU004849

PATIENT
  Age: 44 Year
  Sex: Female

DRUGS (1)
  1. PROTOPIC [Suspect]
     Indication: BENIGN FAMILIAL PEMPHIGUS
     Dosage: 0.1 %, UID/QD, TOPICAL
     Route: 061
     Dates: start: 20040101

REACTIONS (4)
  - BENIGN VULVAL NEOPLASM [None]
  - GENITAL HERPES [None]
  - OFF LABEL USE [None]
  - SQUAMOUS CELL CARCINOMA [None]
